FAERS Safety Report 7945944-9 (Version None)
Quarter: 2011Q4

REPORT INFORMATION
  Report Type: 
  Country: None (occurrence: None)
  Receive Date: 20111129
  Receipt Date: 20111124
  Transmission Date: 20120403
  Serious: Yes (Other)
  Sender: FDA-Public Use
  Company Number: PHHY2011BR103327

PATIENT
  Sex: Female
  Weight: 50 kg

DRUGS (7)
  1. MULTI VITAMINIC [Concomitant]
     Dosage: 1 DF (1 TABLET A DAY)
     Route: 048
  2. CRESTOR [Concomitant]
     Indication: BLOOD CHOLESTEROL
     Dosage: 1 TABLET IN ALTERNATED DAYS
     Route: 048
  3. LOSARTAN POTASSIUM [Concomitant]
     Indication: BLOOD PRESSURE
     Dosage: 25 MG, 1 DF
     Route: 048
  4. LEVOTIROXINA [Concomitant]
     Dosage: 88 MCG, 1 DF
     Route: 048
  5. CALCIUM  WITH D [Concomitant]
     Indication: OSTEOPOROSIS
     Dosage: 600 MG, 1 DF
     Route: 048
  6. DIMETICONE [Concomitant]
     Dosage: 40 MG, 3 DF
     Route: 048
  7. MIACALCIN [Suspect]
     Indication: OSTEOPOROSIS
     Dosage: 200 IU, 1 DOSE A DAY (USED FROM MONDAY TO WEDNESDAY
     Route: 045

REACTIONS (4)
  - BODY HEIGHT DECREASED [None]
  - SENILE DEMENTIA [None]
  - DEPRESSION [None]
  - OSTEOARTHRITIS [None]
